FAERS Safety Report 6035376-5 (Version None)
Quarter: 2009Q1

REPORT INFORMATION
  Report Type: 
  Country: None (occurrence: None)
  Receive Date: 20090112
  Receipt Date: 20090112
  Transmission Date: 20090719
  Serious: Yes (Other)
  Sender: FDA-Public Use
  Company Number: None

PATIENT
  Sex: Female

DRUGS (1)
  1. WELLBUTRIN XL [Suspect]
     Dosage: 300 MG ONCE QD PO
     Route: 048
     Dates: start: 20081201, end: 20090101

REACTIONS (5)
  - ASTHENIA [None]
  - CRYING [None]
  - DEPRESSION [None]
  - MOOD SWINGS [None]
  - PRODUCT QUALITY ISSUE [None]
